FAERS Safety Report 19646595 (Version 1)
Quarter: 2021Q3

REPORT INFORMATION
  Report Type: Spontaneous
  Country: JP (occurrence: JP)
  Receive Date: 20210802
  Receipt Date: 20210802
  Transmission Date: 20211014
  Serious: Yes (Other)
  Sender: FDA-Public Use
  Company Number: JP-PFIZER INC-202100960508

PATIENT
  Sex: Female

DRUGS (2)
  1. ALUMINIUM OXIDE [Concomitant]
     Indication: FIBROMYALGIA
     Route: 048
  2. GABAPEN [Suspect]
     Active Substance: GABAPENTIN
     Indication: FIBROMYALGIA
     Dosage: 400 MG, DAILY
     Route: 048

REACTIONS (2)
  - Product use in unapproved indication [Unknown]
  - Acute kidney injury [Unknown]
